FAERS Safety Report 6906986-5 (Version None)
Quarter: 2010Q3

REPORT INFORMATION
  Report Type: 
  Country: None (occurrence: None)
  Receive Date: 20100804
  Receipt Date: 20080421
  Transmission Date: 20110219
  Serious: No
  Sender: FDA-Public Use
  Company Number: US-PFIZER INC-2008035584

PATIENT
  Sex: Female

DRUGS (4)
  1. NARDIL [Suspect]
     Route: 048
  2. LEVOTHYROXINE [Suspect]
     Indication: THYROID DISORDER
  3. CALCIUM [Concomitant]
  4. MULTI-VITAMINS [Concomitant]

REACTIONS (2)
  - FEELING JITTERY [None]
  - NERVOUSNESS [None]
